FAERS Safety Report 11244377 (Version 1)
Quarter: 2015Q3

REPORT INFORMATION
  Report Type: Report from Study
  Country: US (occurrence: US)
  Receive Date: 20150707
  Receipt Date: 20150707
  Transmission Date: 20151125
  Serious: No
  Sender: FDA-Public Use
  Company Number: US-CELGENEUS-USA-2015065474

PATIENT

DRUGS (4)
  1. REVLIMID [Suspect]
     Active Substance: LENALIDOMIDE
     Indication: MYELODYSPLASTIC SYNDROME
     Route: 048
  2. EXJADE [Concomitant]
     Active Substance: DEFERASIROX
     Dosage: USED FOR 1 YEAR, (ABOUT 2 YEARS AGO), DISCONTINUED, RESTARTED AFTER 1 YEAR.
     Route: 065
  3. VIDAZA [Concomitant]
     Active Substance: AZACITIDINE
     Indication: MYELODYSPLASTIC SYNDROME
     Route: 065
  4. EXJADE [Concomitant]
     Active Substance: DEFERASIROX
     Indication: MYELODYSPLASTIC SYNDROME
     Dosage: USED FOR 1 YEAR, (ABOUT 2 YEARS AGO), DISCONTINUED, RESTARTED AFTER 1 YEAR.
     Route: 065

REACTIONS (1)
  - Serum ferritin increased [Unknown]
